FAERS Safety Report 4511253-3 (Version None)
Quarter: 2004Q4

REPORT INFORMATION
  Report Type: 
  Country: None (occurrence: None)
  Receive Date: 20041122
  Receipt Date: 20041122
  Transmission Date: 20050328
  Serious: Yes (Hospitalization, Disabling)
  Sender: FDA-Public Use
  Company Number: None

PATIENT
  Sex: Male
  Weight: 21.7727 kg

DRUGS (2)
  1. PULMICORT RESPULES [Suspect]
     Indication: ASTHMA
     Dosage: 0.25  EVERY 4 HOURS OTHER
     Route: 050
     Dates: start: 20030220, end: 20030503
  2. XOPENEX [Suspect]
     Indication: ASTHMA
     Dosage: 0.63  EVERY 12 HOURS  OTHER
     Route: 050
     Dates: start: 20030220, end: 20030503

REACTIONS (5)
  - CONDITION AGGRAVATED [None]
  - CRYING [None]
  - DIFFICULTY IN WALKING [None]
  - OSTEOCHONDROSIS [None]
  - OSTEONECROSIS [None]
